FAERS Safety Report 16415166 (Version 4)
Quarter: 2024Q4

REPORT INFORMATION
  Report Type: Spontaneous
  Country: US (occurrence: US)
  Receive Date: 20190611
  Receipt Date: 20241001
  Transmission Date: 20250114
  Serious: No
  Sender: PFIZER
  Company Number: US-PFIZER INC-2019247725

PATIENT
  Age: 37 Year
  Sex: Female
  Weight: 57 kg

DRUGS (5)
  1. DOCETAXEL [Suspect]
     Active Substance: DOCETAXEL
     Indication: Invasive lobular breast carcinoma
     Dosage: UNK, CYCLIC (04 CYCLES, EVERY TWO WEEKS)
     Dates: start: 20111228, end: 20120207
  2. TAXOTERE [Suspect]
     Active Substance: DOCETAXEL
     Indication: Invasive lobular breast carcinoma
     Dosage: UNK, CYCLIC (04 CYCLES, EVERY TWO WEEKS)
     Dates: start: 20111228, end: 20120207
  3. DOCETAXEL [Suspect]
     Active Substance: DOCETAXEL
     Indication: Invasive lobular breast carcinoma
     Dosage: 119 MG, CYCLIC (04 CYCLES, EVERY TWO WEEKS)
     Route: 042
     Dates: start: 20111228, end: 20120207
  4. NEOSAR [Concomitant]
     Active Substance: CYCLOPHOSPHAMIDE
     Indication: Chemotherapy
     Dosage: UNK, ADJUVANT DOSE DENSE
  5. ADRIAMYCIN [Concomitant]
     Active Substance: DOXORUBICIN HYDROCHLORIDE
     Indication: Chemotherapy
     Dosage: UNK, ADJUVANT DOSE DENSE

REACTIONS (10)
  - Alopecia [Not Recovered/Not Resolved]
  - Hair texture abnormal [Not Recovered/Not Resolved]
  - Hair disorder [Not Recovered/Not Resolved]
  - Hair colour changes [Not Recovered/Not Resolved]
  - Madarosis [Not Recovered/Not Resolved]
  - Depressed mood [Unknown]
  - Discomfort [Unknown]
  - Disturbance in social behaviour [Unknown]
  - Emotional distress [Unknown]
  - Self esteem decreased [Unknown]

NARRATIVE: CASE EVENT DATE: 20120201
